FAERS Safety Report 10137106 (Version 1)
Quarter: 2014Q2

REPORT INFORMATION
  Report Type: Spontaneous
  Country: US (occurrence: US)
  Receive Date: 20140429
  Receipt Date: 20140429
  Transmission Date: 20141212
  Serious: No
  Sender: FDA-Public Use
  Company Number: US-ABBVIE-14P-163-1225914-00

PATIENT
  Age: 66 Year
  Sex: Male
  Weight: 95.34 kg

DRUGS (7)
  1. ANDROGEL [Suspect]
     Indication: BLOOD TESTOSTERONE DECREASED
     Dosage: 2 PUMPS DAILY, 1 IN AM AND 1 IN PM
     Route: 061
     Dates: start: 201401
  2. METHADONE [Concomitant]
     Indication: SPINAL CORD INJURY
  3. KLONOPIN [Concomitant]
     Indication: ANXIETY
     Route: 048
  4. HYDROXYZINE [Concomitant]
     Indication: PAIN
     Route: 048
  5. GABAPENTIN [Concomitant]
     Indication: PRODUCT USED FOR UNKNOWN INDICATION
     Route: 048
  6. IBUPROFEN [Concomitant]
     Indication: PAIN
     Dosage: DAILY AS NEEDED
     Route: 048
  7. ACETAMINOPHEN [Concomitant]
     Indication: PAIN
     Dosage: AS NEEDED
     Route: 048

REACTIONS (6)
  - Abdominal pain upper [Not Recovered/Not Resolved]
  - Gynaecomastia [Not Recovered/Not Resolved]
  - Therapeutic response changed [Not Recovered/Not Resolved]
  - Depression [Not Recovered/Not Resolved]
  - Anxiety disorder [Not Recovered/Not Resolved]
  - Panic attack [Not Recovered/Not Resolved]
